FAERS Safety Report 11229922 (Version 13)
Quarter: 2018Q2

REPORT INFORMATION
  Report Type: Report from Study
  Country: US (occurrence: US)
  Receive Date: 20150701
  Receipt Date: 20180519
  Transmission Date: 20180711
  Serious: No
  Sender: FDA-Public Use
  Company Number: PHEH2015US012499

PATIENT
  Age: 24 Year
  Sex: Female

DRUGS (5)
  1. VITAMIN D [Concomitant]
     Active Substance: CHOLECALCIFEROL
     Indication: PRODUCT USED FOR UNKNOWN INDICATION
     Route: 065
  2. AFINITOR [Suspect]
     Active Substance: EVEROLIMUS
     Indication: ANGIOMYOLIPOMA
     Dosage: 5 MG, QD
     Route: 048
     Dates: start: 20150526
  3. AFINITOR [Suspect]
     Active Substance: EVEROLIMUS
     Dosage: 10 MG, QD
     Route: 048
     Dates: start: 20150910
  4. TEGRETOL [Concomitant]
     Active Substance: CARBAMAZEPINE
     Indication: PRODUCT USED FOR UNKNOWN INDICATION
     Route: 065
  5. ASPIRIN. [Concomitant]
     Active Substance: ASPIRIN
     Indication: PRODUCT USED FOR UNKNOWN INDICATION
     Route: 065

REACTIONS (10)
  - Oral pain [Unknown]
  - Oral infection [Unknown]
  - Mouth ulceration [Not Recovered/Not Resolved]
  - Menstrual disorder [Recovering/Resolving]
  - Drug level decreased [Unknown]
  - Oral discomfort [Unknown]
  - Lethargy [Not Recovered/Not Resolved]
  - Stomatitis [Unknown]
  - Blood cholesterol increased [Unknown]
  - Limb injury [Unknown]

NARRATIVE: CASE EVENT DATE: 201506
